FAERS Safety Report 12217631 (Version 1)
Quarter: 2016Q1

REPORT INFORMATION
  Report Type: Spontaneous
  Country: US (occurrence: None)
  Receive Date: 20160328
  Receipt Date: 20160328
  Transmission Date: 20160526
  Serious: No
  Sender: FDA-Public Use
  Company Number: None

PATIENT
  Age: 34 Year
  Sex: Female

DRUGS (2)
  1. MAKENA [Suspect]
     Active Substance: HYDROXYPROGESTERONE CAPROATE
     Indication: PREMATURE LABOUR
     Route: 030
     Dates: start: 20160216, end: 20160302
  2. PRE-NATAL [Concomitant]

REACTIONS (4)
  - Malaise [None]
  - Injection site reaction [None]
  - Injection site infection [None]
  - Seizure [None]

NARRATIVE: CASE EVENT DATE: 20160217
